FAERS Safety Report 14114314 (Version 1)
Quarter: 2017Q4

REPORT INFORMATION
  Report Type: Report from Study
  Country: US (occurrence: US)
  Receive Date: 20171023
  Receipt Date: 20171023
  Transmission Date: 20180321
  Serious: Yes (Other)
  Sender: FDA-Public Use
  Company Number: US-ROCHE-1358819

PATIENT
  Age: 54 Year
  Sex: Male

DRUGS (23)
  1. COREG [Concomitant]
     Active Substance: CARVEDILOL
  2. TRIESENCE [Concomitant]
     Active Substance: TRIAMCINOLONE ACETONIDE
  3. ALLOPURINOL. [Concomitant]
     Active Substance: ALLOPURINOL
     Route: 065
  4. METHOCARBAMOL. [Concomitant]
     Active Substance: METHOCARBAMOL
  5. LANTUS [Concomitant]
     Active Substance: INSULIN GLARGINE
  6. MINOXIDIL. [Concomitant]
     Active Substance: MINOXIDIL
  7. FUROSEMIDE. [Concomitant]
     Active Substance: FUROSEMIDE
  8. EXFORGE [Concomitant]
     Active Substance: AMLODIPINE BESYLATE\VALSARTAN
     Route: 065
  9. PEPCID (UNITED STATES) [Concomitant]
  10. LUCENTIS [Suspect]
     Active Substance: RANIBIZUMAB
     Indication: MACULAR OEDEMA
     Route: 050
     Dates: start: 20120614
  11. AVASTIN [Suspect]
     Active Substance: BEVACIZUMAB
     Indication: DIABETIC RETINOPATHY
  12. BETADINE [Concomitant]
     Active Substance: POVIDONE-IODINE
  13. PHENYLEPHRINE [Concomitant]
     Active Substance: PHENYLEPHRINE\PHENYLEPHRINE HYDROCHLORIDE
     Route: 065
  14. CARVEDILOL. [Concomitant]
     Active Substance: CARVEDILOL
     Route: 065
  15. PRAVASTATIN. [Concomitant]
     Active Substance: PRAVASTATIN
  16. AVASTIN [Suspect]
     Active Substance: BEVACIZUMAB
     Indication: MACULAR OEDEMA
     Route: 065
  17. CLONIDINE. [Concomitant]
     Active Substance: CLONIDINE
  18. TROPICAMIDE. [Concomitant]
     Active Substance: TROPICAMIDE
     Route: 065
  19. APIDRA [Concomitant]
     Active Substance: INSULIN GLULISINE
  20. LUCENTIS [Suspect]
     Active Substance: RANIBIZUMAB
     Indication: DIABETIC RETINOPATHY
     Route: 050
     Dates: start: 20151118
  21. LASIX [Concomitant]
     Active Substance: FUROSEMIDE
  22. ASA [Concomitant]
     Active Substance: ASPIRIN
     Route: 065
  23. NIFEDIPINE. [Concomitant]
     Active Substance: NIFEDIPINE

REACTIONS (12)
  - Cataract nuclear [Unknown]
  - Off label use [Unknown]
  - Deafness [Unknown]
  - Vitreous floaters [Unknown]
  - Chest pain [Unknown]
  - Dyspnoea [Unknown]
  - Intentional product use issue [Unknown]
  - Vision blurred [Unknown]
  - Photopsia [Unknown]
  - Ocular hypertension [Recovering/Resolving]
  - Fatigue [Unknown]
  - Cough [Unknown]

NARRATIVE: CASE EVENT DATE: 20120614
